FAERS Safety Report 6866346-2 (Version None)
Quarter: 2010Q3

REPORT INFORMATION
  Report Type: 
  Country: None (occurrence: None)
  Receive Date: 20100722
  Receipt Date: 20100709
  Transmission Date: 20110219
  Serious: Yes (Other)
  Sender: FDA-Public Use
  Company Number: PHHY2010MX45265

PATIENT
  Sex: Female

DRUGS (2)
  1. DIOVAN HCT [Suspect]
     Indication: HYPERTENSION
     Dosage: 1 TABLET (160/12.5 MG) DAILY
     Route: 048
  2. DIOVAN HCT [Suspect]
     Dosage: 1 TABLET (320/12.5MG) DAILY
     Route: 048
     Dates: start: 20091103

REACTIONS (6)
  - BLOOD PRESSURE INADEQUATELY CONTROLLED [None]
  - CARDIAC DISORDER [None]
  - DIZZINESS [None]
  - EPISTAXIS [None]
  - TACHYCARDIA [None]
  - THYROID DISORDER [None]
